FAERS Safety Report 7598687-8 (Version None)
Quarter: 2011Q3

REPORT INFORMATION
  Report Type: 
  Country: None (occurrence: None)
  Receive Date: 20110711
  Receipt Date: 20110630
  Transmission Date: 20111222
  Serious: Yes (Hospitalization)
  Sender: FDA-Public Use
  Company Number: US-BIOGENIDEC-2011BI010506

PATIENT
  Age: 52 Year
  Sex: Male

DRUGS (1)
  1. AVONEX [Suspect]
     Indication: MULTIPLE SCLEROSIS
     Route: 030
     Dates: start: 20051007

REACTIONS (9)
  - UROSEPSIS [None]
  - URINARY INCONTINENCE [None]
  - URINARY TRACT INFECTION [None]
  - GAIT DISTURBANCE [None]
  - STAPHYLOCOCCAL INFECTION [None]
  - DRUG HYPERSENSITIVITY [None]
  - PENILE HAEMORRHAGE [None]
  - CLOSTRIDIAL INFECTION [None]
  - FATIGUE [None]
